FAERS Safety Report 16744504 (Version 1)
Quarter: 2019Q3

REPORT INFORMATION
  Report Type: Spontaneous
  Country: US (occurrence: US)
  Receive Date: 20190827
  Receipt Date: 20190827
  Transmission Date: 20191005
  Serious: Yes (Other)
  Sender: FDA-Public Use
  Company Number: US-AMGEN-USASP2019133948

PATIENT
  Age: 67 Year
  Sex: Female

DRUGS (2)
  1. PROLIA [Suspect]
     Active Substance: DENOSUMAB
     Dosage: UNK
     Route: 065
     Dates: start: 20190726
  2. PROLIA [Suspect]
     Active Substance: DENOSUMAB
     Indication: PRODUCT USED FOR UNKNOWN INDICATION
     Dosage: UNK
     Route: 065
     Dates: start: 201806, end: 201806

REACTIONS (5)
  - Pain in extremity [Unknown]
  - Spinal operation [Unknown]
  - Malaise [Unknown]
  - Dyspnoea [Unknown]
  - Skin burning sensation [Unknown]

NARRATIVE: CASE EVENT DATE: 2019
